FAERS Safety Report 4910277-1 (Version None)
Quarter: 2006Q1

REPORT INFORMATION
  Report Type: 
  Country: None (occurrence: None)
  Receive Date: 20060213
  Receipt Date: 20050526
  Transmission Date: 20060701
  Serious: Yes (Hospitalization)
  Sender: FDA-Public Use
  Company Number: US-MERCK-0505USA03391

PATIENT
  Age: 65 Year
  Sex: Male
  Weight: 98 kg

DRUGS (1)
  1. VIOXX [Suspect]
     Indication: MONARTHRITIS
     Route: 048

REACTIONS (2)
  - ARRHYTHMIA [None]
  - MYOCARDIAL INFARCTION [None]
